FAERS Safety Report 10168513 (Version 1)
Quarter: 2014Q2

REPORT INFORMATION
  Report Type: Spontaneous
  Country: US (occurrence: US)
  Receive Date: 20140513
  Receipt Date: 20140513
  Transmission Date: 20141212
  Serious: No
  Sender: FDA-Public Use
  Company Number: US-TEVA-466739USA

PATIENT
  Sex: Female

DRUGS (1)
  1. ADENOSINE [Suspect]
     Dosage: 3 MG/ML; 136.51 MCG/KG/MIN

REACTIONS (1)
  - Drug ineffective [Unknown]
